FAERS Safety Report 16770022 (Version 2)
Quarter: 2019Q3

REPORT INFORMATION
  Report Type: Spontaneous
  Country: US (occurrence: US)
  Receive Date: 20190904
  Receipt Date: 20190918
  Transmission Date: 20191005
  Serious: No
  Sender: FDA-Public Use
  Company Number: US-009507513-1908USA006366

PATIENT
  Sex: Female
  Weight: 87.98 kg

DRUGS (2)
  1. MINOCYCLINE [Concomitant]
     Active Substance: MINOCYCLINE HYDROCHLORIDE
     Dosage: TOTAL DAILY DOSE 100 MG (DOSE ALSO REPORTED AS 50 MG, FREQUENCY NOT PROVIDED)
     Route: 048
     Dates: start: 20190530, end: 20190630
  2. NEXPLANON [Suspect]
     Active Substance: ETONOGESTREL
     Indication: MENORRHAGIA
     Dosage: 1 IMPLANT
     Route: 059
     Dates: start: 20170530, end: 20190816

REACTIONS (4)
  - Device breakage [Recovered/Resolved]
  - Menstruation irregular [Recovered/Resolved]
  - Weight increased [Recovered/Resolved]
  - Complication of device removal [Recovered/Resolved]
